FAERS Safety Report 6862172-9 (Version None)
Quarter: 2010Q3

REPORT INFORMATION
  Report Type: 
  Country: None (occurrence: None)
  Receive Date: 20100719
  Receipt Date: 20100708
  Transmission Date: 20110219
  Serious: Yes (Hospitalization)
  Sender: FDA-Public Use
  Company Number: 2010US002684

PATIENT
  Age: 44 Year
  Sex: Male

DRUGS (7)
  1. PROGRAF [Suspect]
     Indication: RENAL TRANSPLANT
     Dosage: 2 MG, BID, ORAL
     Route: 048
     Dates: start: 20051118
  2. HUMALOG [Concomitant]
  3. LANTUS [Concomitant]
  4. AMLODIPINE [Concomitant]
  5. RAPAMUNE [Concomitant]
  6. PREDNISONE TAB [Concomitant]
  7. PERCOCET [Concomitant]

REACTIONS (1)
  - PELVIC FRACTURE [None]
